FAERS Safety Report 5488240-4 (Version None)
Quarter: 2007Q4

REPORT INFORMATION
  Report Type: 
  Country: None (occurrence: None)
  Receive Date: 20071017
  Receipt Date: 20071011
  Transmission Date: 20080405
  Serious: Yes (Other)
  Sender: FDA-Public Use
  Company Number: US-ELI_LILLY_AND_COMPANY-US200710002896

PATIENT
  Sex: Male

DRUGS (2)
  1. ZYPREXA [Suspect]
     Indication: SCHIZOPHRENIA
  2. DEPAKOTE [Concomitant]

REACTIONS (3)
  - INFECTION [None]
  - KETOACIDOSIS [None]
  - WHITE BLOOD CELL COUNT INCREASED [None]
